FAERS Safety Report 5452839-1 (Version None)
Quarter: 2007Q3

REPORT INFORMATION
  Report Type: 
  Country: None (occurrence: None)
  Receive Date: 20070914
  Receipt Date: 20070910
  Transmission Date: 20080115
  Serious: Yes (Other)
  Sender: FDA-Public Use
  Company Number: DE-JNJFOC-20070804038

PATIENT
  Sex: Male
  Weight: 78.2 kg

DRUGS (5)
  1. INVEGA [Suspect]
     Indication: SCHIZOPHRENIA, PARANOID TYPE
     Route: 048
  2. TOPAMAX [Concomitant]
     Route: 048
  3. MELPERON [Concomitant]
     Route: 048
  4. FRISIUM [Concomitant]
  5. LUMINAL [Concomitant]
     Route: 048

REACTIONS (2)
  - CONVULSION [None]
  - ENURESIS [None]
